FAERS Safety Report 15751316 (Version 3)
Quarter: 2019Q1

REPORT INFORMATION
  Report Type: Spontaneous
  Country: RO (occurrence: RO)
  Receive Date: 20181221
  Receipt Date: 20190116
  Transmission Date: 20190417
  Serious: Yes (Hospitalization, Other)
  Sender: FDA-Public Use
  Company Number: RO-BRISTOL-MYERS SQUIBB COMPANY-BMS-2018-120431

PATIENT
  Age: 68 Year
  Sex: Female

DRUGS (1)
  1. ELIQUIS [Suspect]
     Active Substance: APIXABAN
     Indication: CEREBROVASCULAR ACCIDENT PROPHYLAXIS
     Dosage: 5 MG, BID
     Route: 065

REACTIONS (6)
  - Acute kidney injury [Unknown]
  - Abdominal pain [Unknown]
  - Haematoma [Unknown]
  - Anaemia [Unknown]
  - Haemorrhage [Unknown]
  - Post procedural complication [Unknown]

NARRATIVE: CASE EVENT DATE: 201812
